FAERS Safety Report 25896419 (Version 1)
Quarter: 2025Q4

REPORT INFORMATION
  Report Type: Spontaneous
  Country: US (occurrence: None)
  Receive Date: 20251007
  Receipt Date: 20251007
  Transmission Date: 20260118
  Serious: Yes (Hospitalization)
  Sender: FDA-CTU
  Company Number: None

PATIENT
  Age: 40 Year
  Sex: Female

DRUGS (8)
  1. GAMMAGARD S/D [Suspect]
     Active Substance: HUMAN IMMUNOGLOBULIN G
     Indication: Immunodeficiency common variable
     Dosage: OTHER FREQUENCY : EVERY 3 WEEKS;?
     Route: 042
     Dates: start: 20250115
  2. SODIUM CHLOR (500ML/BAG) [Concomitant]
  3. DIPHENHYDRAMINE [Concomitant]
     Active Substance: DIPHENHYDRAMINE
  4. HEPARIN L/L FLUSH SYR (5ML) [Concomitant]
  5. SODIUM CHLOR POSIFLUSH (10ML) [Concomitant]
  6. ACETAMINOPHEN XS [Concomitant]
  7. GAMMAGARD LIQUID [Concomitant]
     Active Substance: HUMAN IMMUNOGLOBULIN G
  8. SOLU MEDROL SDV ACT-O-VIAL [Concomitant]

REACTIONS (2)
  - Dehydration [None]
  - Urinary tract infection [None]

NARRATIVE: CASE EVENT DATE: 20250717
